FAERS Safety Report 8029824-9 (Version None)
Quarter: 2012Q1

REPORT INFORMATION
  Report Type: 
  Country: None (occurrence: None)
  Receive Date: 20120109
  Receipt Date: 20120103
  Transmission Date: 20120608
  Serious: Yes (Other)
  Sender: FDA-Public Use
  Company Number: US-PFIZER INC-2012001507

PATIENT
  Sex: Female
  Weight: 77.098 kg

DRUGS (4)
  1. ALBUTEROL [Concomitant]
     Indication: RESPIRATORY DISORDER
  2. TIKOSYN [Suspect]
     Indication: ATRIAL FIBRILLATION
     Dosage: 250 UG, 2X/DAY
     Route: 048
  3. ALBUTEROL [Concomitant]
     Indication: ASTHMA
     Dosage: 2.5 MG, 2X/DAY
  4. ALBUTEROL [Concomitant]
     Indication: BRONCHITIS

REACTIONS (5)
  - BLADDER PROLAPSE [None]
  - BLADDER DISORDER [None]
  - CONFUSIONAL STATE [None]
  - MALAISE [None]
  - ATRIAL FIBRILLATION [None]
